FAERS Safety Report 9368992 (Version 1)
Quarter: 2013Q2

REPORT INFORMATION
  Report Type: Spontaneous
  Country: US (occurrence: US)
  Receive Date: 20130626
  Receipt Date: 20130626
  Transmission Date: 20140414
  Serious: Yes (Hospitalization, Other)
  Sender: FDA-Public Use
  Company Number: PHEH2013US013465

PATIENT
  Sex: Male

DRUGS (2)
  1. EXELON PATCH [Suspect]
     Dosage: 9.5 MG/24 HRS.
     Route: 062
  2. VITAMIN D [Suspect]

REACTIONS (4)
  - Cerebrovascular accident [Unknown]
  - Asthenia [Unknown]
  - Dementia Alzheimer^s type [Unknown]
  - Arrhythmia [Unknown]
